FAERS Safety Report 5775084-9 (Version None)
Quarter: 2008Q2

REPORT INFORMATION
  Report Type: 
  Country: None (occurrence: None)
  Receive Date: 20080617
  Receipt Date: 20080606
  Transmission Date: 20081010
  Serious: Yes (Other)
  Sender: FDA-Public Use
  Company Number: JP-JNJFOC-20080602485

PATIENT
  Age: 61 Year
  Sex: Female

DRUGS (1)
  1. DOXIL [Suspect]
     Indication: OVARIAN CANCER
     Dosage: 1ST CYCLE
     Route: 042

REACTIONS (3)
  - HAEMORRHAGE SUBCUTANEOUS [None]
  - HERPES DERMATITIS [None]
  - STOMATITIS [None]
